FAERS Safety Report 15547056 (Version 1)
Quarter: 2018Q4

REPORT INFORMATION
  Report Type: Spontaneous
  Country: US (occurrence: US)
  Receive Date: 20181024
  Receipt Date: 20181024
  Transmission Date: 20190205
  Serious: Yes (Hospitalization, Other)
  Sender: FDA-Public Use
  Company Number: US-BECTON DICKINSON-2018BDN00410

PATIENT
  Sex: Male

DRUGS (5)
  1. VANCOMYCIN [Concomitant]
     Active Substance: VANCOMYCIN
     Route: 065
  2. CHLORHEXIDINE [Suspect]
     Active Substance: CHLORHEXIDINE
     Dosage: UNK, ONCE (10-MINUTE CHLORHEXIDINE SCRUB WAS UTILIZED)
     Route: 061
  3. CHLORHEXIDINE [Suspect]
     Active Substance: CHLORHEXIDINE
     Indication: ANTIBIOTIC PROPHYLAXIS
     Dosage: (WASHED HIS GENITALS WITH CHLORHEXIDINE GLUCONATE SOAP THE NIGHT BEFORE AND THE MORNING OF SURGERY)
     Route: 061
  4. IODINE-IMPREGNATED DRAPE [Concomitant]
     Route: 061
  5. GENTAMICIN. [Concomitant]
     Active Substance: GENTAMICIN
     Route: 065

REACTIONS (2)
  - Post procedural infection [Unknown]
  - Penile prosthesis removal [Unknown]
